APPROVED DRUG PRODUCT: SEMPREX-D
Active Ingredient: ACRIVASTINE; PSEUDOEPHEDRINE HYDROCHLORIDE
Strength: 8MG;60MG **Federal Register determination that product was not discontinued or withdrawn for safety or effectiveness reasons**
Dosage Form/Route: CAPSULE;ORAL
Application: N019806 | Product #001
Applicant: ENDO OPERATIONS LTD
Approved: Mar 25, 1994 | RLD: Yes | RS: No | Type: DISCN